FAERS Safety Report 24243106 (Version 1)
Quarter: 2024Q3

REPORT INFORMATION
  Report Type: Spontaneous
  Country: IN (occurrence: None)
  Receive Date: 20240823
  Receipt Date: 20240823
  Transmission Date: 20241017
  Serious: Yes (Life-Threatening, Hospitalization)
  Sender: ASTRAZENECA
  Company Number: 2024A190879

PATIENT
  Age: 25767 Day
  Sex: Female
  Weight: 106.6 kg

DRUGS (3)
  1. BRILINTA [Suspect]
     Active Substance: TICAGRELOR
     Indication: Acute coronary syndrome
     Route: 048
  2. ASPIRIN [Concomitant]
     Active Substance: ASPIRIN
  3. BRILINTA [Concomitant]
     Active Substance: TICAGRELOR

REACTIONS (1)
  - Cerebrovascular accident [Recovering/Resolving]

NARRATIVE: CASE EVENT DATE: 20210428
